FAERS Safety Report 9319795 (Version 2)
Quarter: 2013Q2

REPORT INFORMATION
  Report Type: Spontaneous
  Country: IT (occurrence: IT)
  Receive Date: 20130530
  Receipt Date: 20130618
  Transmission Date: 20140414
  Serious: Yes (Hospitalization)
  Sender: FDA-Public Use
  Company Number: IT-GLAXOSMITHKLINE-B0895436A

PATIENT
  Age: 11 Year
  Sex: Male

DRUGS (3)
  1. IMIGRAN NASAL SPRAY [Suspect]
     Indication: HEADACHE
     Dosage: 10MG PER DAY
     Route: 045
     Dates: start: 20130412, end: 20130412
  2. CO-EFFERALGAN [Suspect]
     Indication: HEADACHE
     Dosage: 530MG PER DAY
     Route: 048
     Dates: start: 20130412, end: 20130412
  3. TORADOL [Concomitant]

REACTIONS (4)
  - Chest pain [Recovered/Resolved]
  - Dyspnoea [Unknown]
  - Headache [Unknown]
  - Tachypnoea [Unknown]
